FAERS Safety Report 14102023 (Version 1)
Quarter: 2017Q4

REPORT INFORMATION
  Report Type: Spontaneous
  Country: ES (occurrence: ES)
  Receive Date: 20171018
  Receipt Date: 20171018
  Transmission Date: 20180321
  Serious: Yes (Life-Threatening, Hospitalization)
  Sender: FDA-Public Use
  Company Number: ES-ALLERGAN-1759027US

PATIENT
  Age: 68 Year
  Sex: Male

DRUGS (5)
  1. DIGOXINE [Concomitant]
     Active Substance: DIGOXIN
     Indication: CARDIAC FLUTTER
     Dosage: 0.13 MG, QD
     Route: 048
     Dates: start: 201607, end: 20170509
  2. NEBIVOLOL HCL - BP [Suspect]
     Active Substance: NEBIVOLOL
     Indication: PRODUCT USED FOR UNKNOWN INDICATION
     Dosage: 10 MG, QD
     Route: 048
     Dates: start: 201004, end: 20170509
  3. ALDOCUMAR [Concomitant]
     Active Substance: WARFARIN SODIUM
     Indication: CARDIAC FLUTTER
     Dosage: UNK
     Route: 048
     Dates: start: 2009, end: 20170509
  4. ALDACTONE [Interacting]
     Active Substance: SPIRONOLACTONE
     Indication: PRODUCT USED FOR UNKNOWN INDICATION
     Dosage: 25 MG, QD
     Route: 048
     Dates: start: 2009, end: 20170509
  5. TORASEMIDE [Interacting]
     Active Substance: TORSEMIDE
     Indication: PRODUCT USED FOR UNKNOWN INDICATION
     Dosage: 30 MG, QD
     Route: 048
     Dates: start: 201607, end: 20170509

REACTIONS (3)
  - Hyperkalaemia [Recovered/Resolved]
  - Drug interaction [Recovered/Resolved]
  - Acute kidney injury [Recovered/Resolved]

NARRATIVE: CASE EVENT DATE: 20170509
